FAERS Safety Report 10058627 (Version 1)
Quarter: 2014Q2

REPORT INFORMATION
  Report Type: Spontaneous
  Country: US (occurrence: US)
  Receive Date: 20140404
  Receipt Date: 20140404
  Transmission Date: 20141212
  Serious: Yes (Other)
  Sender: FDA-Public Use
  Company Number: US-ASTRAZENECA-2014SE22249

PATIENT
  Age: 71 Year
  Sex: Male
  Weight: 92.5 kg

DRUGS (9)
  1. PULMICORT FLEXHALER [Suspect]
     Indication: PULMONARY FUNCTION TEST DECREASED
     Dosage: 180 MCG, 1 INHALATION TWICE A DAY
     Route: 055
     Dates: start: 201403
  2. WARFARIN [Suspect]
     Indication: ANTICOAGULANT THERAPY
     Route: 048
     Dates: start: 2008
  3. CARVEDILOL [Concomitant]
     Indication: CARDIAC DISORDER
     Route: 048
  4. CARVEDILOL [Concomitant]
     Indication: HEART RATE
     Route: 048
  5. SOTALOL [Concomitant]
     Indication: CARDIAC DISORDER
     Dosage: 2.5 PILLS DAILY
     Route: 048
     Dates: start: 2007
  6. SOTALOL [Concomitant]
     Indication: CARDIAC DISORDER
     Dosage: 1.5 PILLS BID
     Route: 048
     Dates: start: 2007
  7. FOSINOPRIL [Concomitant]
     Indication: BLOOD PRESSURE
     Route: 048
  8. ASPRIRIN [Concomitant]
     Indication: MYOCARDIAL INFARCTION
     Dosage: LOW DOSE, DAILY
     Route: 048
  9. METAMUCIL [Concomitant]
     Indication: CONSTIPATION

REACTIONS (5)
  - Rectal haemorrhage [Unknown]
  - Flatulence [Unknown]
  - Coagulopathy [Unknown]
  - Off label use [Not Recovered/Not Resolved]
  - Off label use [Unknown]
